FAERS Safety Report 22148472 (Version 1)
Quarter: 2023Q1

REPORT INFORMATION
  Report Type: Spontaneous
  Country: US (occurrence: US)
  Receive Date: 20230328
  Receipt Date: 20230328
  Transmission Date: 20230417
  Serious: No
  Sender: FDA-Public Use
  Company Number: US-SA-SAC20230327000529

PATIENT
  Age: 63 Year
  Sex: Female

DRUGS (11)
  1. DUPIXENT [Suspect]
     Active Substance: DUPILUMAB
     Indication: Dermatitis atopic
     Dosage: 300 MG, QOW
     Route: 058
     Dates: start: 202107
  2. AZITHROMYCIN [Concomitant]
     Active Substance: AZITHROMYCIN
  3. PREDNISONE [Concomitant]
     Active Substance: PREDNISONE
  4. CEPHALEXIN [Concomitant]
     Active Substance: CEPHALEXIN
  5. TRAZODONE HCL [Concomitant]
     Active Substance: TRAZODONE HYDROCHLORIDE
  6. LEVOTHYROXINE [Concomitant]
     Active Substance: LEVOTHYROXINE
     Dosage: 50 MCG CAPSULE
  7. TACROLIMUS [Concomitant]
     Active Substance: TACROLIMUS
     Dosage: UNK
  8. ZINC [Concomitant]
     Active Substance: ZINC
     Dosage: ELDERBERRY ZINC 90 MG-15MG LOZENGE
  9. VITAMINS [Concomitant]
     Active Substance: VITAMINS
  10. ALBUTEROL SULFATE [Concomitant]
     Active Substance: ALBUTEROL SULFATE
  11. XYZAL [Concomitant]
     Active Substance: LEVOCETIRIZINE DIHYDROCHLORIDE

REACTIONS (1)
  - Sinusitis [Not Recovered/Not Resolved]

NARRATIVE: CASE EVENT DATE: 20230319
